APPROVED DRUG PRODUCT: DOFETILIDE
Active Ingredient: DOFETILIDE
Strength: 0.5MG
Dosage Form/Route: CAPSULE;ORAL
Application: A212410 | Product #003
Applicant: NOVAST LABORATORIES LTD
Approved: Dec 27, 2019 | RLD: No | RS: No | Type: DISCN